FAERS Safety Report 4893081-2 (Version None)
Quarter: 2005Q4

REPORT INFORMATION
  Report Type: 
  Country: None (occurrence: None)
  Receive Date: 20051220
  Receipt Date: 20050418
  Transmission Date: 20060501
  Serious: Yes (Other)
  Sender: FDA-Public Use
  Company Number: PHEH2004US10413

PATIENT
  Age: 61 Year
  Sex: Male

DRUGS (5)
  1. AREDIA [Suspect]
     Indication: MULTIPLE MYELOMA
     Dosage: 80 MG, QMO, INFUSION
     Dates: start: 20001109, end: 20020731
  2. ZOMETA [Suspect]
     Indication: MULTIPLE MYELOMA
     Dosage: 4 MG, QMO, INFUSION
     Dates: start: 20020923, end: 20040420
  3. ADRIAMYCIN PFS [Concomitant]
  4. THALIDOMIDE (THALIDOMIDE) [Concomitant]
  5. DOXIL [Concomitant]

REACTIONS (14)
  - ANAEMIA [None]
  - BONE DEBRIDEMENT [None]
  - CARDIAC FAILURE CONGESTIVE [None]
  - GASTROINTESTINAL HAEMORRHAGE [None]
  - HYPERBARIC OXYGEN THERAPY [None]
  - IMPAIRED HEALING [None]
  - INFECTION [None]
  - JAW OPERATION [None]
  - OSTEONECROSIS [None]
  - RENAL FAILURE ACUTE [None]
  - RENAL FAILURE CHRONIC [None]
  - TOOTH EXTRACTION [None]
  - WOUND CLOSURE [None]
  - WOUND TREATMENT [None]
